FAERS Safety Report 22636561 (Version 8)
Quarter: 2024Q4

REPORT INFORMATION
  Report Type: Spontaneous
  Country: US (occurrence: US)
  Receive Date: 20230623
  Receipt Date: 20241030
  Transmission Date: 20250115
  Serious: Yes (Hospitalization, Other)
  Sender: PFIZER
  Company Number: US-PFIZER INC-202300110874

PATIENT
  Age: 80 Year
  Sex: Female
  Weight: 91.63 kg

DRUGS (4)
  1. VYNDAMAX [Suspect]
     Active Substance: TAFAMIDIS
     Indication: Amyloidosis
     Dosage: ONE 61 MG TAFAMIDIS CAPSULE ORALLY ONCE DAILY
     Route: 048
     Dates: start: 2021
  2. VYNDAMAX [Suspect]
     Active Substance: TAFAMIDIS
     Indication: Atrial fibrillation
  3. VYNDAMAX [Suspect]
     Active Substance: TAFAMIDIS
     Indication: Amyloidosis
  4. ELIQUIS [Concomitant]
     Active Substance: APIXABAN
     Dosage: UNK

REACTIONS (6)
  - Cardioversion [Unknown]
  - Food poisoning [Unknown]
  - Heart rate irregular [Unknown]
  - Movement disorder [Unknown]
  - Renal disorder [Unknown]
  - Fluid retention [Unknown]

NARRATIVE: CASE EVENT DATE: 20230101
